FAERS Safety Report 6178751-0 (Version None)
Quarter: 2009Q2

REPORT INFORMATION
  Report Type: 
  Country: None (occurrence: None)
  Receive Date: 20090504
  Receipt Date: 20081118
  Transmission Date: 20091009
  Serious: No
  Sender: FDA-Public Use
  Company Number: FR-ALEXION-A200800364

PATIENT

DRUGS (3)
  1. SOLIRIS [Suspect]
     Indication: PAROXYSMAL NOCTURNAL HAEMOGLOBINURIA
     Route: 042
     Dates: start: 20080519
  2. DANATROL [Concomitant]
     Indication: APLASTIC ANAEMIA
  3. EXJADE [Concomitant]
     Dosage: 25 MG/KG, QD
     Dates: start: 20030101

REACTIONS (1)
  - BLOOD LACTATE DEHYDROGENASE INCREASED [None]
